FAERS Safety Report 5736231-8 (Version None)
Quarter: 2008Q2

REPORT INFORMATION
  Report Type: 
  Country: None (occurrence: None)
  Receive Date: 20080508
  Receipt Date: 20080425
  Transmission Date: 20081010
  Serious: Yes (Hospitalization)
  Sender: FDA-Public Use
  Company Number: E2020-02676-CLI-JP

PATIENT
  Age: 79 Year
  Sex: Male
  Weight: 40 kg

DRUGS (4)
  1. DONEPEZIL HCL [Suspect]
     Indication: DEMENTIA ALZHEIMER'S TYPE
     Dosage: 10 MG, 1 IN 1 D, ORAL
     Route: 048
     Dates: start: 20080419, end: 20080422
  2. TIAPRIDE HYDROCHLORIDE (TIAPRIDE HYDROCHLORIDE) [Concomitant]
  3. GASTROM (ECABET MONOSODIUM) [Concomitant]
  4. LANSOPRAZOLE [Concomitant]

REACTIONS (5)
  - CHEST X-RAY ABNORMAL [None]
  - HOT FLUSH [None]
  - PNEUMONIA ASPIRATION [None]
  - PYREXIA [None]
  - VOMITING [None]
